FAERS Safety Report 17439754 (Version 1)
Quarter: 2020Q1

REPORT INFORMATION
  Report Type: Spontaneous
  Country: JP (occurrence: JP)
  Receive Date: 20200220
  Receipt Date: 20200220
  Transmission Date: 20200409
  Serious: Yes (Hospitalization, Other)
  Sender: FDA-Public Use
  Company Number: JP-009507513-2002JPN001742J

PATIENT
  Age: 69 Year

DRUGS (2)
  1. REBETOL [Suspect]
     Active Substance: RIBAVIRIN
     Dosage: 3 DOSAGE FORM
     Route: 048
     Dates: start: 20200129, end: 20200207
  2. EPCLUSA [Suspect]
     Active Substance: SOFOSBUVIR\VELPATASVIR
     Indication: CHRONIC HEPATITIS C
     Dosage: 1 DOSAGE FORM, QD
     Route: 048
     Dates: start: 20200129, end: 20200207

REACTIONS (1)
  - Myocardial infarction [Not Recovered/Not Resolved]

NARRATIVE: CASE EVENT DATE: 20200207
